FAERS Safety Report 5484847-9 (Version None)
Quarter: 2007Q4

REPORT INFORMATION
  Report Type: 
  Country: None (occurrence: None)
  Receive Date: 20071010
  Receipt Date: 20070925
  Transmission Date: 20080405
  Serious: Yes (Death)
  Sender: FDA-Public Use
  Company Number: 2007BM000129

PATIENT
  Age: 41 Year
  Sex: Male

DRUGS (3)
  1. PREDNISONE [Suspect]
     Indication: SYSTEMIC LUPUS ERYTHEMATOSUS
     Dosage: 15 MG;QD
  2. AZATHIOPRINE [Suspect]
     Indication: SYSTEMIC LUPUS ERYTHEMATOSUS
     Dosage: 50 MG;BID;
  3. ORAPRED [Suspect]

REACTIONS (16)
  - ARACHNOID CYST [None]
  - CENTRAL NERVOUS SYSTEM NECROSIS [None]
  - CEREBELLAR ATROPHY [None]
  - COLLAPSE OF LUNG [None]
  - COORDINATION ABNORMAL [None]
  - FACIAL PALSY [None]
  - JC VIRUS INFECTION [None]
  - LYMPHOPENIA [None]
  - MEAN CELL VOLUME INCREASED [None]
  - NEUROLOGICAL SYMPTOM [None]
  - PARALYSIS [None]
  - PLEURAL EFFUSION [None]
  - PROGRESSIVE MULTIFOCAL LEUKOENCEPHALOPATHY [None]
  - PSEUDOBULBAR PALSY [None]
  - SYSTEMIC LUPUS ERYTHEMATOSUS [None]
  - VITH NERVE PARALYSIS [None]
